FAERS Safety Report 5985994-5 (Version None)
Quarter: 2008Q4

REPORT INFORMATION
  Report Type: 
  Country: None (occurrence: None)
  Receive Date: 20081209
  Receipt Date: 20081208
  Transmission Date: 20090506
  Serious: Yes (Death)
  Sender: FDA-Public Use
  Company Number: FI-JNJFOC-20081201737

PATIENT
  Sex: Male

DRUGS (8)
  1. HALOPERIDOL [Suspect]
     Indication: SCHIZOPHRENIA
     Route: 065
  2. ABILIFY [Suspect]
     Indication: PSYCHOTIC DISORDER
     Route: 030
  3. LEPONEX [Suspect]
     Indication: PSYCHOTIC DISORDER
     Route: 048
  4. ZYPREXA [Suspect]
     Indication: DRUG USE FOR UNKNOWN INDICATION
     Route: 048
  5. CISARDINOL-ACUTARD [Suspect]
     Indication: DRUG USE FOR UNKNOWN INDICATION
     Route: 030
  6. TENOX [Concomitant]
     Route: 065
  7. ATIVAN [Concomitant]
     Route: 065
  8. PROPAL [Concomitant]
     Route: 065

REACTIONS (1)
  - DEATH [None]
